FAERS Safety Report 9355337 (Version 2)
Quarter: 2013Q3

REPORT INFORMATION
  Report Type: Report from Study
  Country: CA (occurrence: CA)
  Receive Date: 20130619
  Receipt Date: 20130701
  Transmission Date: 20140515
  Serious: Yes (Hospitalization)
  Sender: FDA-Public Use
  Company Number: CA-JNJFOC-20130609672

PATIENT
  Age: 23 Year
  Sex: Male
  Weight: 76.5 kg

DRUGS (6)
  1. REMICADE [Suspect]
     Indication: COLITIS ULCERATIVE
     Dosage: 2ND DOSE
     Route: 042
     Dates: start: 20130611
  2. REMICADE [Suspect]
     Indication: COLITIS ULCERATIVE
     Dosage: INDUCTION PHASE
     Route: 042
     Dates: start: 20130528
  3. IMURAN [Suspect]
     Indication: PRODUCT USED FOR UNKNOWN INDICATION
     Route: 065
  4. IMURAN [Suspect]
     Indication: PRODUCT USED FOR UNKNOWN INDICATION
     Route: 065
  5. PREDNISONE [Concomitant]
     Route: 048
  6. SALOFALK [Concomitant]
     Route: 065

REACTIONS (4)
  - Chest discomfort [Recovering/Resolving]
  - Lipase increased [Recovering/Resolving]
  - Nausea [Recovering/Resolving]
  - Malaise [Recovering/Resolving]
